FAERS Safety Report 5725237-0 (Version None)
Quarter: 2008Q2

REPORT INFORMATION
  Report Type: 
  Country: None (occurrence: None)
  Receive Date: 20080501
  Receipt Date: 20080423
  Transmission Date: 20081010
  Serious: Yes (Hospitalization)
  Sender: FDA-Public Use
  Company Number: US-ABBOTT-08P-163-0448941-00

PATIENT
  Sex: Female
  Weight: 99.426 kg

DRUGS (3)
  1. RITONAVIR SOFT GELATIN CAPSULES [Suspect]
     Indication: HIV INFECTION
     Route: 048
  2. DARUNOVIR [Concomitant]
     Indication: DRUG USE FOR UNKNOWN INDICATION
     Route: 048
     Dates: start: 20070928
  3. TRUVADA [Concomitant]
     Indication: DRUG USE FOR UNKNOWN INDICATION
     Dosage: 200/300 MG
     Route: 048
     Dates: start: 20070928

REACTIONS (1)
  - ABNORMAL BEHAVIOUR [None]
